FAERS Safety Report 20162362 (Version 1)
Quarter: 2021Q4

REPORT INFORMATION
  Report Type: Spontaneous
  Country: US (occurrence: US)
  Receive Date: 20211208
  Receipt Date: 20211208
  Transmission Date: 20220303
  Serious: No
  Sender: FDA-Public Use
  Company Number: US-INSUD PHARMA-2111US03052

PATIENT

DRUGS (1)
  1. OMEPRAZOLE [Suspect]
     Active Substance: OMEPRAZOLE
     Indication: Gastrooesophageal reflux disease
     Dosage: 20 MG DAILY IN THE MORNING
     Route: 048
     Dates: start: 202111

REACTIONS (2)
  - Therapeutic product effect decreased [Recovering/Resolving]
  - Product substitution issue [Unknown]
